FAERS Safety Report 7504202-7 (Version None)
Quarter: 2011Q2

REPORT INFORMATION
  Report Type: 
  Country: None (occurrence: None)
  Receive Date: 20110401
  Receipt Date: 20110103
  Transmission Date: 20111010
  Serious: No
  Sender: FDA-Public Use
  Company Number: US-004464

PATIENT
  Sex: Male
  Weight: 83.9154 kg

DRUGS (4)
  1. SYNTHROID [Concomitant]
  2. CARBIDOPA [Concomitant]
  3. AMANTADINE HCL [Concomitant]
  4. FIRMAGON [Suspect]
     Indication: PRODUCT USED FOR UNKNOWN INDICATION
     Dates: start: 20101210

REACTIONS (1)
  - FATIGUE [None]
